FAERS Safety Report 20784054 (Version 1)
Quarter: 2022Q2

REPORT INFORMATION
  Report Type: Spontaneous
  Country: IT (occurrence: IT)
  Receive Date: 20220504
  Receipt Date: 20220504
  Transmission Date: 20220720
  Serious: Yes (Other)
  Sender: FDA-Public Use
  Company Number: IT-BAYER-2022P001393

PATIENT
  Age: 42 Year
  Sex: Female

DRUGS (2)
  1. MIRENA [Suspect]
     Active Substance: LEVONORGESTREL
     Indication: Menometrorrhagia
     Dosage: 20?G/DAY
     Route: 015
     Dates: start: 20190430
  2. COVID-19 VACCINE [Concomitant]
     Route: 030

REACTIONS (4)
  - Hypothyroidism [None]
  - Renin increased [None]
  - Hypertension [Not Recovered/Not Resolved]
  - Drug resistance [None]
